FAERS Safety Report 19590340 (Version 1)
Quarter: 2021Q3

REPORT INFORMATION
  Report Type: Spontaneous
  Country: US (occurrence: US)
  Receive Date: 20210721
  Receipt Date: 20210721
  Transmission Date: 20211014
  Serious: No
  Sender: FDA-Public Use
  Company Number: US-AMGEN-USASP2021108244

PATIENT
  Sex: Female

DRUGS (7)
  1. OMEPRAZOLE. [Concomitant]
     Active Substance: OMEPRAZOLE
     Indication: GASTROOESOPHAGEAL REFLUX DISEASE
  2. LOVAZA [Concomitant]
     Active Substance: OMEGA-3-ACID ETHYL ESTERS
  3. CALCIUM [Concomitant]
     Active Substance: CALCIUM
  4. METOPROLOL. [Concomitant]
     Active Substance: METOPROLOL
     Indication: HYPERTENSION
  5. VITAMINS NOS [Concomitant]
     Active Substance: VITAMINS
  6. PROLIA [Suspect]
     Active Substance: DENOSUMAB
     Indication: PRODUCT USED FOR UNKNOWN INDICATION
     Dosage: UNK
     Route: 065
     Dates: start: 20210127
  7. VITAMIN D;VITAMIN E [Concomitant]

REACTIONS (9)
  - Myalgia [Not Recovered/Not Resolved]
  - Bone pain [Not Recovered/Not Resolved]
  - Pain in extremity [Unknown]
  - Pain in jaw [Recovered/Resolved]
  - Asthenia [Unknown]
  - Arthralgia [Unknown]
  - Gastroenteritis viral [Recovered/Resolved]
  - Blood creatine phosphokinase increased [Unknown]
  - Musculoskeletal stiffness [Unknown]

NARRATIVE: CASE EVENT DATE: 20210127
